FAERS Safety Report 14562749 (Version 2)
Quarter: 2018Q1

REPORT INFORMATION
  Report Type: Spontaneous
  Country: US (occurrence: US)
  Receive Date: 20180222
  Receipt Date: 20180313
  Transmission Date: 20180509
  Serious: Yes (Other)
  Sender: FDA-Public Use
  Company Number: US-AKORN PHARMACEUTICALS-2018AKN00175

PATIENT
  Age: 17 Year
  Sex: Male
  Weight: 58.5 kg

DRUGS (4)
  1. MYORISAN [Suspect]
     Active Substance: ISOTRETINOIN
     Dosage: 70 MG, 1X/DAY
     Dates: start: 20171215, end: 20180112
  2. MYORISAN [Suspect]
     Active Substance: ISOTRETINOIN
     Dosage: 60 MG, 1X/DAY
     Route: 048
     Dates: start: 201801
  3. MYORISAN [Suspect]
     Active Substance: ISOTRETINOIN
     Indication: ACNE CYSTIC
     Dosage: 40 MG, 1X/DAY
     Route: 048
     Dates: start: 20171115, end: 20171214
  4. ZOLOFT [Concomitant]
     Active Substance: SERTRALINE HYDROCHLORIDE
     Dosage: 50 MG, 1X/DAY

REACTIONS (8)
  - Fatigue [Unknown]
  - Decreased interest [Not Recovered/Not Resolved]
  - Off label use [Not Recovered/Not Resolved]
  - Initial insomnia [Unknown]
  - Somnolence [Not Recovered/Not Resolved]
  - Depression [Unknown]
  - Depressed mood [Not Recovered/Not Resolved]
  - Asthenia [Not Recovered/Not Resolved]

NARRATIVE: CASE EVENT DATE: 201801
